FAERS Safety Report 25926157 (Version 1)
Quarter: 2025Q4

REPORT INFORMATION
  Report Type: Spontaneous
  Country: US (occurrence: US)
  Receive Date: 20251015
  Receipt Date: 20251015
  Transmission Date: 20260118
  Serious: Yes (Other)
  Sender: PFIZER
  Company Number: US-PFIZER INC-202500203097

PATIENT
  Age: 62 Year
  Sex: Male

DRUGS (7)
  1. VINCRISTINE SULFATE [Suspect]
     Active Substance: VINCRISTINE SULFATE
     Indication: Phaeochromocytoma
     Dosage: UNK, CYCLIC (32 CYCLES)
     Dates: start: 2013
  2. VINCRISTINE SULFATE [Suspect]
     Active Substance: VINCRISTINE SULFATE
     Dosage: UNK, CYCLIC (32 CYCLES)
     Dates: end: 201504
  3. DACARBAZINE [Suspect]
     Active Substance: DACARBAZINE
     Indication: Phaeochromocytoma
     Dosage: UNK, CYCLIC (32 CYCLES)
     Dates: start: 2013
  4. DACARBAZINE [Suspect]
     Active Substance: DACARBAZINE
     Dosage: UNK, CYCLIC (32 CYCLES)
     Dates: end: 201504
  5. CYCLOPHOSPHAMIDE [Suspect]
     Active Substance: CYCLOPHOSPHAMIDE
     Indication: Phaeochromocytoma
     Dosage: UNK, CYCLIC (32 CYCLES)
     Dates: start: 2013
  6. CYCLOPHOSPHAMIDE [Suspect]
     Active Substance: CYCLOPHOSPHAMIDE
     Dosage: UNK, CYCLIC (32 CYCLES)
     Dates: end: 201504
  7. DEMSER [Concomitant]
     Active Substance: METYROSINE
     Indication: Hypertensive crisis
     Dosage: UNK
     Dates: start: 2013, end: 2015

REACTIONS (2)
  - Pancytopenia [Unknown]
  - Off label use [Unknown]

NARRATIVE: CASE EVENT DATE: 20130101
